FAERS Safety Report 16017109 (Version 1)
Quarter: 2019Q1

REPORT INFORMATION
  Report Type: Spontaneous
  Country: US (occurrence: US)
  Receive Date: 20190228
  Receipt Date: 20190228
  Transmission Date: 20190418
  Serious: Yes (Other)
  Sender: FDA-Public Use
  Company Number: US-COOPERSURGICAL, INC.-US-2019CPS000448

PATIENT

DRUGS (1)
  1. PARAGARD T 380A [Suspect]
     Active Substance: COPPER
     Indication: CONTRACEPTION
     Dosage: UNK
     Route: 015
     Dates: start: 20141016, end: 20190213

REACTIONS (6)
  - Device breakage [Recovered/Resolved]
  - Menorrhagia [Unknown]
  - Complication of device removal [Recovered/Resolved]
  - Dysmenorrhoea [Unknown]
  - Embedded device [Recovered/Resolved]
  - Foreign body in reproductive tract [Recovered/Resolved]

NARRATIVE: CASE EVENT DATE: 20190213
